FAERS Safety Report 10487323 (Version 1)
Quarter: 2014Q4

REPORT INFORMATION
  Report Type: Spontaneous
  Country: JP (occurrence: JP)
  Receive Date: 20141001
  Receipt Date: 20141001
  Transmission Date: 20150528
  Serious: Yes (Hospitalization)
  Sender: FDA-Public Use
  Company Number: PHHY2014JP127852

PATIENT
  Age: 45 Year
  Sex: Male

DRUGS (6)
  1. VANCOMYCIN [Suspect]
     Active Substance: VANCOMYCIN
     Dosage: 1 G, TID
     Route: 042
  2. DAPTOMYCIN. [Suspect]
     Active Substance: DAPTOMYCIN
     Dosage: 6 MG/KG, UNK
     Route: 042
  3. VANCOMYCIN [Suspect]
     Active Substance: VANCOMYCIN
     Dosage: 1 G, TID
     Route: 042
  4. RIFAMPICIN [Suspect]
     Active Substance: RIFAMPIN
     Dosage: 300 MG, BID
     Route: 048
  5. RIFAMPICIN [Suspect]
     Active Substance: RIFAMPIN
     Dosage: 300 MG, BID
     Route: 048
  6. VANCOMYCIN [Suspect]
     Active Substance: VANCOMYCIN
     Dosage: 1 G, TID
     Route: 042

REACTIONS (9)
  - Staphylococcal infection [Recovered/Resolved]
  - Cerebral haemorrhage [Recovered/Resolved]
  - Altered state of consciousness [Recovered/Resolved]
  - Haemorrhagic cerebral infarction [Recovered/Resolved]
  - Vascular graft complication [Recovered/Resolved]
  - Graft infection [Recovered/Resolved]
  - Mediastinal abscess [Recovered/Resolved]
  - Pyrexia [Recovered/Resolved]
  - Multiple-drug resistance [Recovered/Resolved]
